FAERS Safety Report 24129194 (Version 4)
Quarter: 2024Q3

REPORT INFORMATION
  Report Type: Spontaneous
  Country: US (occurrence: US)
  Receive Date: 20240723
  Receipt Date: 20240829
  Transmission Date: 20241016
  Serious: Yes (Other)
  Sender: GILEAD
  Company Number: US-GILEAD-2024-0681268

PATIENT
  Age: 59 Year
  Sex: Female
  Weight: 120.64 kg

DRUGS (20)
  1. LENACAPAVIR [Suspect]
     Active Substance: LENACAPAVIR
     Indication: HIV infection
     Dosage: 927 MG
     Route: 058
     Dates: start: 20240711
  2. LENACAPAVIR [Suspect]
     Active Substance: LENACAPAVIR
     Dosage: 309 MG/ML SOLUTION; INJECT 1.5 MILLILITER ON EACH SIDE OF LOWER ABDOMEN SINGLE DOSES ON DAY 15 OF TR
     Route: 058
  3. LENACAPAVIR [Suspect]
     Active Substance: LENACAPAVIR
     Dosage: 300 MG TABLET; TAKE 2 TABS ONCE ON DAY 1
     Route: 048
  4. LENACAPAVIR [Suspect]
     Active Substance: LENACAPAVIR
     Dosage: 300 MG TABLET; TAKE 2 TABS ON DAY 2
     Route: 048
  5. LENACAPAVIR [Suspect]
     Active Substance: LENACAPAVIR
     Dosage: 300 MG TABLET; TAKE 1 ON DAY 8
     Route: 048
  6. HYDROCHLOROTHIAZIDE [Concomitant]
     Active Substance: HYDROCHLOROTHIAZIDE
  7. RUKOBIA [Concomitant]
     Active Substance: FOSTEMSAVIR TROMETHAMINE
  8. SYNTHROID [Concomitant]
     Active Substance: LEVOTHYROXINE SODIUM
  9. LISINOPRIL [Concomitant]
     Active Substance: LISINOPRIL
  10. ASPIRIN [Concomitant]
     Active Substance: ASPIRIN
  11. CHOLECALCIFEROL [Concomitant]
     Active Substance: CHOLECALCIFEROL
  12. EZETIMIBE [Concomitant]
     Active Substance: EZETIMIBE
  13. NORVIR [Concomitant]
     Active Substance: RITONAVIR
  14. PREZISTA [Concomitant]
     Active Substance: DARUNAVIR ETHANOLATE
  15. METFORMIN [Concomitant]
     Active Substance: METFORMIN HYDROCHLORIDE
  16. CRESTOR [Concomitant]
     Active Substance: ROSUVASTATIN CALCIUM
  17. GABAPENTIN [Concomitant]
     Active Substance: GABAPENTIN
  18. METOPROLOL SUCCINATE [Concomitant]
     Active Substance: METOPROLOL SUCCINATE
  19. ACTICAL [CALCIUM PIDOLATE] [Concomitant]
  20. AMMONIUM LACTATE [Concomitant]
     Active Substance: AMMONIUM LACTATE

REACTIONS (2)
  - Injection site necrosis [Unknown]
  - Wrong technique in product usage process [Unknown]

NARRATIVE: CASE EVENT DATE: 20240711
